FAERS Safety Report 25588068 (Version 1)
Quarter: 2025Q3

REPORT INFORMATION
  Report Type: Spontaneous
  Country: US (occurrence: US)
  Receive Date: 20250722
  Receipt Date: 20250722
  Transmission Date: 20251021
  Serious: No
  Sender: ROCHE
  Company Number: US-ROCHE-10000340051

PATIENT
  Age: 38 Year
  Sex: Female
  Weight: 78.93 kg

DRUGS (8)
  1. OCREVUS [Suspect]
     Active Substance: OCRELIZUMAB
     Indication: Multiple sclerosis
     Dosage: RECEIVED FIRST FULL INFUSION ON 03-JUL-2025
     Route: 042
     Dates: start: 20241220
  2. ALPRAZOLAM [Concomitant]
     Active Substance: ALPRAZOLAM
  3. AMPYRA [Concomitant]
     Active Substance: DALFAMPRIDINE
  4. NEXPLANON [Concomitant]
     Active Substance: ETONOGESTREL
     Route: 058
  5. TYSABRI [Concomitant]
     Active Substance: NATALIZUMAB
  6. PHENTERMINE [Concomitant]
     Active Substance: PHENTERMINE
  7. TOPAMAX [Concomitant]
     Active Substance: TOPIRAMATE
  8. EFFEXOR [Concomitant]
     Active Substance: VENLAFAXINE HYDROCHLORIDE

REACTIONS (1)
  - Throat tightness [Recovered/Resolved]

NARRATIVE: CASE EVENT DATE: 20250703
